FAERS Safety Report 21165969 (Version 1)
Quarter: 2022Q3

REPORT INFORMATION
  Report Type: Spontaneous
  Country: US (occurrence: US)
  Receive Date: 20220803
  Receipt Date: 20220803
  Transmission Date: 20221027
  Serious: No
  Sender: FDA-Public Use
  Company Number: US-drreddys-SPO/USA/22/0152844

PATIENT
  Age: 69 Year
  Sex: Female

DRUGS (25)
  1. OMEPRAZOLE [Interacting]
     Active Substance: OMEPRAZOLE
     Indication: Gastrooesophageal reflux disease
     Dosage: 40 MG 1 TABLET IN THE MORNING
  2. AMITRIPTYLINE [Interacting]
     Active Substance: AMITRIPTYLINE
     Indication: Neuropathy peripheral
  3. AMITRIPTYLINE [Interacting]
     Active Substance: AMITRIPTYLINE
  4. AMITRIPTYLINE [Interacting]
     Active Substance: AMITRIPTYLINE
     Indication: Neuropathy peripheral
     Dosage: AT BEDTIME
  5. ALPRAZOLAM [Concomitant]
     Active Substance: ALPRAZOLAM
     Indication: Anxiety
     Dosage: AS NEEDED
  6. ATORVASTATIN [Concomitant]
     Active Substance: ATORVASTATIN
     Indication: Hyperlipidaemia
     Dosage: 40 MG 1 TABLET IN THE MORNING
  7. ALENDRONATE SODIUM [Concomitant]
     Active Substance: ALENDRONATE SODIUM
     Indication: Osteoporosis
     Dosage: 70 MG 1 TABLET ONCE A WEEK
  8. APIXABAN [Concomitant]
     Active Substance: APIXABAN
     Indication: Product used for unknown indication
     Dosage: 5 MG 1 TABLET IN THE MORNING AND EVENING
  9. ACETYLSALICYLIC ACID  81 mg [Concomitant]
     Indication: Product used for unknown indication
     Dosage: 81 MG 1 TABLET IN THE MORNING
  10. POTASSIUM CHLORIDE [Concomitant]
     Active Substance: POTASSIUM CHLORIDE
     Indication: Hypokalaemia
     Dosage: 20 MEQ 1 TABLET IN THE MORNING
  11. PHENYTOIN [Concomitant]
     Active Substance: PHENYTOIN
     Indication: Epilepsy
     Dosage: 100 MG 1 TABLET IN THE MORNING AND BEDTIME
  12. TIOTROPIUM [Concomitant]
     Active Substance: TIOTROPIUM
     Indication: Chronic obstructive pulmonary disease
     Dosage: 1.25 MCG 2 PUFFS ONCE DAILY
  13. HYDROXYZINE HYDROCHLORIDE [Concomitant]
     Active Substance: HYDROXYZINE HYDROCHLORIDE
     Indication: Anxiety
     Dosage: AT BEDTIME
  14. DILTIAZEM HYDROCHLORIDE [Concomitant]
     Active Substance: DILTIAZEM HYDROCHLORIDE
     Indication: Atrial fibrillation
     Dosage: IN THE MORNING
  15. LEVOTHYROXINE SODIUM [Concomitant]
     Active Substance: LEVOTHYROXINE SODIUM
     Indication: Hypothyroidism
     Dosage: 20 MCG 1 TABLET IN THE MORNING
  16. IPRATROPIUM, ALBUTEROL [Concomitant]
     Indication: Chronic obstructive pulmonary disease
     Dosage: 0.5MG/3MG 1 VIAL VIA NEBULIZER FOUR TIMES DAILY.
  17. GABAPENTIN [Concomitant]
     Active Substance: GABAPENTIN
     Indication: Neuropathy peripheral
     Dosage: 100 MG 1 CAPSULE IN THE MORNING, EVENING AND BEDTIME
  18. ALBUTEROL [Concomitant]
     Active Substance: ALBUTEROL
     Indication: Chronic obstructive pulmonary disease
     Dosage: 90 MCG 2 PUFFS EVERY 6 H AS NEEDED
  19. PREGABALIN [Concomitant]
     Active Substance: PREGABALIN
     Indication: Neuropathy peripheral
     Dosage: 150 MG 1 CAPSULE IN THE MORNING AND EVENING
  20. CARVEDILOL [Concomitant]
     Active Substance: CARVEDILOL
     Indication: Hypertension
     Dosage: 6.25 MG 1 TABLET IN THE MORNING AND BEDTIME
  21. DULOXETINE [Concomitant]
     Active Substance: DULOXETINE
     Indication: Neuropathy peripheral
     Dosage: 60 MG 1 CAPSULE IN THE MORNING
  22. TRAMADOL [Concomitant]
     Active Substance: TRAMADOL
     Indication: Osteoarthritis
     Dosage: 50 MG 1 TABLET IN THE MORNING, EVENING, AND BEDTIME
  23. SOTALOL [Concomitant]
     Active Substance: SOTALOL
     Indication: Ischaemic cardiomyopathy
     Dosage: 120 MG 1 TABLET IN THE MORNING AND EVENING
  24. FUROSEMIDE [Concomitant]
     Active Substance: FUROSEMIDE
     Indication: Ischaemic cardiomyopathy
     Dosage: 80 MG 1 TABLET ONCE DAILY
  25. NITROGLYCERIN [Concomitant]
     Active Substance: NITROGLYCERIN
     Indication: Ischaemic cardiomyopathy
     Dosage: 0.4 MG 1 TABLET EVERY 5 MIN AS NEEDED

REACTIONS (4)
  - Withdrawal syndrome [Recovering/Resolving]
  - Drug interaction [Recovering/Resolving]
  - Drug-genetic interaction [Recovering/Resolving]
  - Tremor [Recovering/Resolving]
